FAERS Safety Report 5162255-8 (Version None)
Quarter: 2006Q4

REPORT INFORMATION
  Report Type: 
  Country: None (occurrence: None)
  Receive Date: 20061121
  Receipt Date: 20061110
  Transmission Date: 20070319
  Serious: Yes (Hospitalization)
  Sender: FDA-Public Use
  Company Number: SU-2006-005623

PATIENT
  Sex: Male

DRUGS (1)
  1. BENICAR [Suspect]
     Indication: DRUG USE FOR UNKNOWN INDICATION
     Dosage: MG PO
     Route: 048

REACTIONS (2)
  - HEPATIC FAILURE [None]
  - LIVER TRANSPLANT [None]
